FAERS Safety Report 12192939 (Version 1)
Quarter: 2016Q1

REPORT INFORMATION
  Report Type: Spontaneous
  Country: JP (occurrence: JP)
  Receive Date: 20160318
  Receipt Date: 20160318
  Transmission Date: 20160526
  Serious: Yes (Hospitalization)
  Sender: FDA-Public Use
  Company Number: JP-009507513-1603JPN008829

PATIENT
  Age: 41 Year
  Sex: Female

DRUGS (4)
  1. REFLEX [Suspect]
     Active Substance: MIRTAZAPINE
     Dosage: 570 MG, ONCE
     Route: 048
  2. LITHIUM CARBONATE. [Concomitant]
     Active Substance: LITHIUM CARBONATE
     Dosage: 5000 MG, ONCE
     Route: 048
  3. CHLORPROMAZINE HYDROCHLORIDE. [Concomitant]
     Active Substance: CHLORPROMAZINE HYDROCHLORIDE
     Dosage: 900 MG, ONCE
     Route: 048
  4. CLOXAZOLAM [Concomitant]
     Active Substance: CLOXAZOLAM
     Dosage: 92 MG, ONCE
     Route: 048

REACTIONS (1)
  - Intentional overdose [Unknown]
